FAERS Safety Report 21286043 (Version 1)
Quarter: 2022Q3

REPORT INFORMATION
  Report Type: Spontaneous
  Country: US (occurrence: None)
  Receive Date: 20220901
  Receipt Date: 20220901
  Transmission Date: 20221026
  Serious: No
  Sender: FDA-Public Use
  Company Number: None

PATIENT
  Age: 20 Year
  Sex: Female

DRUGS (1)
  1. EPIDUO FORTE [Suspect]
     Active Substance: ADAPALENE\BENZOYL PEROXIDE
     Indication: Acne
     Dates: start: 20220805

REACTIONS (4)
  - Hyperaesthesia [None]
  - Skin exfoliation [None]
  - Application site pain [None]
  - Application site erythema [None]
